FAERS Safety Report 8605384-6 (Version None)
Quarter: 2012Q3

REPORT INFORMATION
  Report Type: 
  Country: None (occurrence: None)
  Receive Date: 20120820
  Receipt Date: 20120808
  Transmission Date: 20120928
  Serious: Yes (Death)
  Sender: FDA-Public Use
  Company Number: JP-PFIZER INC-2012171389

PATIENT
  Age: 63 Year
  Sex: Male

DRUGS (5)
  1. OXYCODONE HYDROCHLORIDE [Concomitant]
     Indication: PAIN
     Dosage: 1.67 MG, 3X/DAY
     Route: 048
     Dates: end: 20120321
  2. PREGABALIN [Suspect]
     Dosage: 25 MG, 1X/DAY
     Route: 048
     Dates: start: 20120309, end: 20120320
  3. FENTANYL CITRATE [Concomitant]
     Indication: PAIN
     Dosage: 1 MG, 1X/DAY
     Route: 062
     Dates: end: 20120321
  4. PREDNISOLONE [Concomitant]
     Dosage: 5 MG, 3X/DAY
     Route: 048
     Dates: end: 20120306
  5. PREGABALIN [Suspect]
     Indication: NERVE COMPRESSION
     Dosage: 75 MG, 1X/DAY
     Route: 048
     Dates: start: 20120305, end: 20120308

REACTIONS (1)
  - PNEUMONIA [None]
